FAERS Safety Report 8119195-1 (Version None)
Quarter: 2012Q1

REPORT INFORMATION
  Report Type: 
  Country: None (occurrence: None)
  Receive Date: 20120207
  Receipt Date: 20120123
  Transmission Date: 20120608
  Serious: Yes (Hospitalization, Other)
  Sender: FDA-Public Use
  Company Number: AU-ROCHE-1011767

PATIENT
  Sex: Female

DRUGS (6)
  1. LUCENTIS [Suspect]
     Route: 050
     Dates: start: 20110901
  2. ATACAND [Concomitant]
  3. LUCENTIS [Suspect]
     Indication: AGE-RELATED MACULAR DEGENERATION
     Route: 050
     Dates: start: 20101201, end: 20110901
  4. FOSAMAX [Concomitant]
  5. CARVEDILOL [Concomitant]
  6. ZESTRIL [Concomitant]

REACTIONS (6)
  - WEIGHT DECREASED [None]
  - FLUID RETENTION [None]
  - CYSTITIS [None]
  - DYSPNOEA [None]
  - URINARY RETENTION [None]
  - CARDIOMYOPATHY [None]
